FAERS Safety Report 5901551-0 (Version None)
Quarter: 2008Q3

REPORT INFORMATION
  Report Type: 
  Country: None (occurrence: None)
  Receive Date: 20080925
  Receipt Date: 20080911
  Transmission Date: 20090109
  Serious: Yes (Death)
  Sender: FDA-Public Use
  Company Number: 2008AL010655

PATIENT
  Age: 39 Year
  Sex: Male

DRUGS (10)
  1. MIRTAZAPINE [Suspect]
     Dosage: 15 MG;QD;PO
     Route: 048
  2. PERPHENAZINE [Concomitant]
  3. LORAZEPAM [Concomitant]
  4. IBUPROFEN [Concomitant]
  5. VALPROIC ACID [Concomitant]
  6. ZOLPIDEM [Concomitant]
  7. DIAZEPAM [Concomitant]
  8. ACETAMINOPHEN [Concomitant]
  9. DIAZEPAM [Concomitant]
  10. PERPHENAZINE [Concomitant]

REACTIONS (1)
  - CARDIAC ARREST [None]
